FAERS Safety Report 8770248 (Version 2)
Quarter: 2012Q4

REPORT INFORMATION
  Report Type: 
  Country: GB (occurrence: GB)
  Receive Date: 20120906
  Receipt Date: 20121024
  Transmission Date: 20130627
  Serious: Yes (Hospitalization)
  Sender: FDA-Public Use
  Company Number: GB-ASTRAZENECA-2012SE65513

PATIENT
  Age: 43 Year
  Sex: Female
  Weight: 140 kg

DRUGS (5)
  1. QUETIAPINE [Suspect]
     Indication: BIPOLAR DISORDER
     Route: 048
     Dates: start: 2006, end: 20120806
  2. DIAZEPAM [Concomitant]
     Indication: ANXIETY
     Route: 048
     Dates: start: 2008
  3. FUROSEMIDE [Concomitant]
     Indication: OEDEMA
     Route: 048
     Dates: start: 201205
  4. PAROXETINE [Concomitant]
     Indication: ANXIETY
     Route: 048
     Dates: start: 2005
  5. ZOLPIDEM [Concomitant]
     Indication: INSOMNIA
     Route: 048
     Dates: start: 2011

REACTIONS (5)
  - Congestive cardiomyopathy [Recovering/Resolving]
  - Cardiac failure [Unknown]
  - Exercise tolerance decreased [Unknown]
  - Ejection fraction decreased [Unknown]
  - Dyspnoea [Unknown]
